FAERS Safety Report 4803050-6 (Version None)
Quarter: 2005Q4

REPORT INFORMATION
  Report Type: 
  Country: None (occurrence: None)
  Receive Date: 20051019
  Receipt Date: 20051007
  Transmission Date: 20060501
  Serious: Yes (Hospitalization)
  Sender: FDA-Public Use
  Company Number: JP-JPN-A20052407

PATIENT
  Age: 53 Year
  Sex: Male
  Weight: 59 kg

DRUGS (4)
  1. FLUTIDE [Suspect]
     Indication: EMPHYSEMA
     Dosage: 400MCG TWICE PER DAY
     Route: 055
     Dates: start: 20050802, end: 20050914
  2. SEREVENT [Suspect]
     Indication: EMPHYSEMA
     Dosage: 50MCG TWICE PER DAY
     Route: 055
     Dates: start: 20050802, end: 20050914
  3. SPIRIVA [Suspect]
     Dosage: 18MCG PER DAY
     Route: 055
     Dates: start: 20050802, end: 20050914
  4. UNIPHYL [Suspect]
     Dosage: 400MG PER DAY
     Route: 048
     Dates: start: 20050802, end: 20050914

REACTIONS (3)
  - EOSINOPHILIC PNEUMONIA [None]
  - LUNG INFILTRATION [None]
  - OXYGEN SATURATION DECREASED [None]
